FAERS Safety Report 5283099-2 (Version None)
Quarter: 2007Q1

REPORT INFORMATION
  Report Type: 
  Country: None (occurrence: None)
  Receive Date: 20061226
  Receipt Date: 20061102
  Transmission Date: 20070707
  Serious: No
  Sender: FDA-Public Use
  Company Number: 2006PV024451

PATIENT
  Age: 70 Year
  Sex: Female
  Weight: 156.491 kg

DRUGS (3)
  1. SYMLIN [Suspect]
     Indication: DIABETES MELLITUS NON-INSULIN-DEPENDENT
     Dosage: SC
     Route: 058
     Dates: start: 20060708, end: 20060826
  2. HUMULIN N [Concomitant]
  3. HUMALOG [Concomitant]

REACTIONS (2)
  - ARTHRALGIA [None]
  - URTICARIA GENERALISED [None]
